FAERS Safety Report 17838723 (Version 1)
Quarter: 2020Q2

REPORT INFORMATION
  Report Type: Spontaneous
  Country: US (occurrence: US)
  Receive Date: 20200528
  Receipt Date: 20200528
  Transmission Date: 20200714
  Serious: Yes (Hospitalization)
  Sender: FDA-Public Use
  Company Number: None

PATIENT
  Age: 74 Year
  Sex: Male

DRUGS (1)
  1. PROPOFOL (PROPOFOL10MG/ML INJ,EMULSION) [Suspect]
     Active Substance: PROPOFOL
     Indication: SURGERY
     Dates: start: 20191203, end: 20191203

REACTIONS (2)
  - Cardiac arrest [None]
  - Bradycardia [None]

NARRATIVE: CASE EVENT DATE: 20191203
